FAERS Safety Report 10552493 (Version 2)
Quarter: 2014Q4

REPORT INFORMATION
  Report Type: Spontaneous
  Country: JP (occurrence: JP)
  Receive Date: 20141029
  Receipt Date: 20141202
  Transmission Date: 20150529
  Serious: Yes (Death)
  Sender: FDA-Public Use
  Company Number: JP-TEVA-518157ISR

PATIENT
  Age: 49 Year
  Sex: Female

DRUGS (13)
  1. VIDAZA [Concomitant]
     Active Substance: AZACITIDINE
     Dosage: 95 MILLIGRAM DAILY;
     Route: 058
     Dates: start: 20140911, end: 20140917
  2. CRAVIT [Concomitant]
     Active Substance: LEVOFLOXACIN
     Indication: PROPHYLAXIS
     Dosage: 500 MILLIGRAM DAILY;
     Route: 048
     Dates: start: 20140910, end: 20140923
  3. FILGRASTIM BS INJ ^NK^ [Suspect]
     Active Substance: FILGRASTIM
     Indication: PROPHYLAXIS
     Dosage: 150 MICROGRAM/M2 DAILY;
     Route: 058
     Dates: start: 20140929, end: 20141015
  4. VFEND [Concomitant]
     Active Substance: VORICONAZOLE
     Dosage: MG/DAY
     Route: 042
     Dates: start: 20140930, end: 20141015
  5. CEFEPIME [Suspect]
     Active Substance: CEFEPIME\CEFEPIME HYDROCHLORIDE
     Indication: PYREXIA
     Dosage: G/DAY
     Route: 042
     Dates: start: 20141010, end: 20141015
  6. FLUCONAZOLE. [Concomitant]
     Active Substance: FLUCONAZOLE
     Indication: PROPHYLAXIS
     Dosage: 200 MILLIGRAM DAILY;
     Route: 048
     Dates: start: 20140910, end: 20140928
  7. MORPHINE HYDROCHLORIDE [Concomitant]
     Active Substance: MORPHINE HYDROCHLORIDE
     Indication: BRONCHOPULMONARY ASPERGILLOSIS
     Dosage: 20 MG/DAY
     Route: 042
     Dates: start: 20141012, end: 20141016
  8. SAXIZON [Concomitant]
     Active Substance: HYDROCORTISONE SODIUM SUCCINATE
     Dosage: MG/DAY
     Route: 042
     Dates: start: 20141014, end: 20141016
  9. CEFEPIME [Suspect]
     Active Substance: CEFEPIME\CEFEPIME HYDROCHLORIDE
     Dosage: G/DAY
     Route: 042
     Dates: start: 20140924, end: 20140928
  10. MEROPENEM. [Suspect]
     Active Substance: MEROPENEM
     Indication: PYREXIA
     Dosage: G/DAY
     Route: 042
     Dates: start: 20140929, end: 20141009
  11. MITOXANTRONE [Concomitant]
     Active Substance: MITOXANTRONE HYDROCHLORIDE
     Indication: ACUTE MYELOID LEUKAEMIA
     Dosage: 8 MILLIGRAM DAILY;
     Route: 042
     Dates: start: 20140910, end: 20140910
  12. VFEND [Concomitant]
     Active Substance: VORICONAZOLE
     Indication: BRONCHOPULMONARY ASPERGILLOSIS
     Dosage: MG/DAY
     Route: 042
     Dates: start: 20140929
  13. VANCOMYCIN [Concomitant]
     Active Substance: VANCOMYCIN
     Indication: PYREXIA
     Dosage: G/DAY
     Route: 042
     Dates: start: 20140926, end: 20141006

REACTIONS (3)
  - Condition aggravated [Fatal]
  - Pyrexia [Recovered/Resolved]
  - Bronchopulmonary aspergillosis [Fatal]

NARRATIVE: CASE EVENT DATE: 20140929
